FAERS Safety Report 6787940-3 (Version None)
Quarter: 2010Q2

REPORT INFORMATION
  Report Type: 
  Country: None (occurrence: None)
  Receive Date: 20100623
  Receipt Date: 20071106
  Transmission Date: 20101027
  Serious: No
  Sender: FDA-Public Use
  Company Number: US-PFIZER INC-2007078953

PATIENT
  Sex: Female

DRUGS (3)
  1. VIRACEPT [Suspect]
     Indication: HIV INFECTION
  2. ANTIVIRALS FOR SYSTEMIC USE [Suspect]
     Indication: HIV INFECTION
  3. COMBIVIR [Concomitant]

REACTIONS (2)
  - ADVERSE DRUG REACTION [None]
  - SOMNOLENCE [None]
